FAERS Safety Report 5145475-8 (Version None)
Quarter: 2006Q4

REPORT INFORMATION
  Report Type: 
  Country: None (occurrence: None)
  Receive Date: 20061101
  Receipt Date: 20061016
  Transmission Date: 20070319
  Serious: Yes (Hospitalization)
  Sender: FDA-Public Use
  Company Number: US-2006-009409

PATIENT
  Age: 57 Year
  Sex: Female
  Weight: 117 kg

DRUGS (15)
  1. BETASERON [Suspect]
     Indication: RELAPSING-REMITTING MULTIPLE SCLEROSIS
     Dosage: 8 MIU, EVERY 2D, SUBCUTANEOUS
     Route: 058
     Dates: start: 20000118, end: 20060413
  2. INDERAL - SLOW RELEASE (PROPRANOLOL HYDROCHLORIDE) [Concomitant]
  3. GLYBURIDE [Concomitant]
  4. MAGNESIUM (MAGNESIUM) [Concomitant]
  5. PROZAC [Concomitant]
  6. WELLBUTRIN [Concomitant]
  7. NORVASC [Concomitant]
  8. PROTONIX [Concomitant]
  9. HYDROCHLOROTHIAZID [Concomitant]
  10. VASOTEC [Concomitant]
  11. LIPITOR [Concomitant]
  12. AVANDIA [Concomitant]
  13. TYLENOL [Concomitant]
  14. MULTIVITAMINS (PANTHENOL, RETINOL) [Concomitant]
  15. CALCIUM (CALCIUM) [Concomitant]

REACTIONS (3)
  - AUTOIMMUNE HEPATITIS [None]
  - CARDIAC FAILURE CONGESTIVE [None]
  - HEPATIC CIRRHOSIS [None]
